FAERS Safety Report 17272814 (Version 1)
Quarter: 2020Q1

REPORT INFORMATION
  Report Type: Spontaneous
  Country: US (occurrence: US)
  Receive Date: 20191223
  Receipt Date: 20191223
  Transmission Date: 20200409
  Serious: No
  Sender: FDA-Public Use
  Company Number: None

PATIENT
  Age: 87 Year
  Sex: Male
  Weight: 92 kg

DRUGS (1)
  1. CARVEDILOL (CARVEDILOL 6.25MG TAB) [Suspect]
     Active Substance: CARVEDILOL
     Indication: CARDIAC FAILURE CONGESTIVE
     Dosage: ?          OTHER DOSE:6.25MG;?
     Route: 048
     Dates: start: 20191108, end: 20191109

REACTIONS (4)
  - Bradycardia [None]
  - Hypotension [None]
  - Lethargy [None]
  - Confusional state [None]

NARRATIVE: CASE EVENT DATE: 20191209
